FAERS Safety Report 5703029-6 (Version None)
Quarter: 2008Q2

REPORT INFORMATION
  Report Type: 
  Country: None (occurrence: None)
  Receive Date: 20080411
  Receipt Date: 20080407
  Transmission Date: 20081010
  Serious: Yes (Death)
  Sender: FDA-Public Use
  Company Number: FR-BRISTOL-MYERS SQUIBB COMPANY-14146922

PATIENT
  Age: 42 Year
  Sex: Male

DRUGS (2)
  1. PRAVASTATIN [Suspect]
     Route: 048
     Dates: end: 20070724
  2. PREZISTA [Interacting]
     Dosage: FILM COATED TABLETS
     Route: 048
     Dates: start: 20070401

REACTIONS (6)
  - BRADYCARDIA [None]
  - DISSEMINATED INTRAVASCULAR COAGULATION [None]
  - DRUG INTERACTION [None]
  - RENAL FAILURE ACUTE [None]
  - RHABDOMYOLYSIS [None]
  - SHOCK [None]
